FAERS Safety Report 23295721 (Version 1)
Quarter: 2023Q4

REPORT INFORMATION
  Report Type: Spontaneous
  Country: US (occurrence: US)
  Receive Date: 20231214
  Receipt Date: 20231214
  Transmission Date: 20240109
  Serious: No
  Sender: FDA-Public Use
  Company Number: US-ALVOGEN-2023091689

PATIENT
  Sex: Male

DRUGS (1)
  1. FENTANYL [Suspect]
     Active Substance: FENTANYL\FENTANYL CITRATE
     Indication: Product used for unknown indication
     Dosage: GTIN# 00347781426477?S/N# 153677993903?EXPIRATION DATE: UU-MAR-2026?STRENGTH: 50 MCG/HR

REACTIONS (2)
  - Device adhesion issue [Unknown]
  - Device malfunction [Unknown]
